FAERS Safety Report 10100746 (Version 1)
Quarter: 2014Q2

REPORT INFORMATION
  Report Type: Spontaneous
  Country: JP (occurrence: JP)
  Receive Date: 20140423
  Receipt Date: 20140423
  Transmission Date: 20141212
  Serious: Yes (Other)
  Sender: FDA-Public Use
  Company Number: CHPA2014JP005509

PATIENT
  Sex: Female

DRUGS (3)
  1. PURSENNID [Suspect]
     Dosage: UNK
     Route: 048
  2. LANSOPRAZOLE [Suspect]
     Dosage: UNK
     Route: 048
  3. SOLETON [Suspect]
     Dosage: UNK
     Route: 048

REACTIONS (2)
  - Blood pressure increased [Unknown]
  - Drug administration error [Unknown]
